FAERS Safety Report 9038850 (Version 2)
Quarter: 2013Q3

REPORT INFORMATION
  Report Type: Report from Study
  Country: JP (occurrence: JP)
  Receive Date: 20130129
  Receipt Date: 20130916
  Transmission Date: 20140515
  Serious: Yes (Other)
  Sender: FDA-Public Use
  Company Number: JP-VERTEX PHARMACEUTICALS INC.-2013-001278

PATIENT
  Age: 67 Year
  Sex: Female

DRUGS (9)
  1. VX-950 (TELAPREVIR) [Suspect]
     Indication: CHRONIC HEPATITIS C
     Dosage: 1500 MG, QD
     Route: 048
     Dates: start: 20120501, end: 20120724
  2. PEGINTERFERON ALFA-2B [Suspect]
     Indication: CHRONIC HEPATITIS C
     Dosage: 1.5 ?G/KG, QW
     Route: 058
     Dates: start: 20120501, end: 20120627
  3. PEGINTERFERON ALFA-2B [Suspect]
     Dosage: 1.0 ?G/KG, QW
     Route: 058
     Dates: start: 20120704, end: 20120711
  4. PEGINTERFERON ALFA-2B [Suspect]
     Dosage: 1.5 ?G/KG, QW
     Route: 058
     Dates: start: 20120718, end: 20121010
  5. RIBAVIRIN [Concomitant]
     Dosage: 400 MG, QD
     Route: 048
     Dates: start: 20120501, end: 20121016
  6. THYRADIN S [Concomitant]
     Dosage: 25 ?G, QD
     Route: 048
     Dates: start: 20120606, end: 20120703
  7. THYRADIN S [Concomitant]
     Dosage: 50 ?G, QD
     Route: 048
     Dates: start: 20120704, end: 20120828
  8. THYRADIN S [Concomitant]
     Dosage: 37.5 ?G, QD
     Route: 048
     Dates: start: 20120829, end: 20121009
  9. THYRADIN S [Concomitant]
     Dosage: 50 ?G, QD
     Route: 048
     Dates: start: 20121010

REACTIONS (1)
  - Diabetes mellitus [Not Recovered/Not Resolved]
